FAERS Safety Report 9090505 (Version 3)
Quarter: 2015Q4

REPORT INFORMATION
  Report Type: Spontaneous
  Country: FR (occurrence: FR)
  Receive Date: 20130201
  Receipt Date: 20151204
  Transmission Date: 20160305
  Serious: Yes (Hospitalization, Other)
  Sender: FDA-Public Use
  Company Number: FR-009507513-1301FRA012024

PATIENT
  Age: 40 Year
  Sex: Male

DRUGS (10)
  1. INEXIUM [Concomitant]
     Active Substance: ESOMEPRAZOLE
  2. ISENTRESS [Suspect]
     Active Substance: RALTEGRAVIR POTASSIUM
     Indication: HIV TEST POSITIVE
     Dosage: 400 MG, BID
     Route: 048
     Dates: start: 20121023, end: 20121212
  3. TRUVADA [Suspect]
     Active Substance: EMTRICITABINE\TENOFOVIR DISOPROXIL FUMARATE
     Indication: HIV TEST POSITIVE
     Dosage: 1 DF, QD
     Route: 048
     Dates: start: 20121203, end: 20121212
  4. TRUVADA [Suspect]
     Active Substance: EMTRICITABINE\TENOFOVIR DISOPROXIL FUMARATE
     Dosage: 1 DF, QD
     Route: 048
     Dates: start: 20121023, end: 20121122
  5. BACTRIM [Suspect]
     Active Substance: SULFAMETHOXAZOLE\TRIMETHOPRIM
     Indication: TUBERCULOSIS
     Dosage: UNK
     Route: 048
     Dates: start: 20120824, end: 20121212
  6. KIVEXA [Suspect]
     Active Substance: ABACAVIR SULFATE\LAMIVUDINE
     Indication: HIV TEST POSITIVE
     Dosage: UNK
     Dates: start: 20121122, end: 20121203
  7. RIFINAH [Suspect]
     Active Substance: ISONIAZID\RIFAMPIN
     Dosage: UNK
     Dates: start: 20121023
  8. TRIFLUCAN [Concomitant]
     Active Substance: FLUCONAZOLE
  9. RIFATER [Concomitant]
     Active Substance: ISONIAZID\PYRAZINAMIDE\RIFAMPIN
     Dosage: UNK
     Dates: start: 20120824, end: 20121023
  10. ATRIPLA [Suspect]
     Active Substance: EFAVIRENZ\EMTRICITABINE\TENOFOVIR DISOPROXIL FUMARATE
     Dosage: UNK
     Route: 048
     Dates: start: 20120905, end: 20121023

REACTIONS (1)
  - Drug reaction with eosinophilia and systemic symptoms [Recovering/Resolving]

NARRATIVE: CASE EVENT DATE: 2012
